FAERS Safety Report 7035488-3 (Version None)
Quarter: 2010Q4

REPORT INFORMATION
  Report Type: 
  Country: None (occurrence: None)
  Receive Date: 20101008
  Receipt Date: 20100927
  Transmission Date: 20110411
  Serious: Yes (Other)
  Sender: FDA-Public Use
  Company Number: JP-PFIZER INC-2010115512

PATIENT

DRUGS (3)
  1. LYRICA [Suspect]
     Dosage: UNK
     Route: 048
  2. VANCOMYCIN [Concomitant]
     Dosage: UNK
  3. MEROPEN [Concomitant]
     Dosage: UNK

REACTIONS (1)
  - HEPATIC FUNCTION ABNORMAL [None]
